FAERS Safety Report 7368165-X (Version None)
Quarter: 2011Q1

REPORT INFORMATION
  Report Type: 
  Country: None (occurrence: None)
  Receive Date: 20110323
  Receipt Date: 20110315
  Transmission Date: 20110831
  Serious: No
  Sender: FDA-Public Use
  Company Number: US-PFIZER INC-2011020816

PATIENT
  Sex: Female
  Weight: 41.723 kg

DRUGS (2)
  1. GENOTROPIN [Suspect]
     Indication: BODY HEIGHT BELOW NORMAL
     Dosage: 12 MG, 2.6 MG, 6 NIGHTS A WEEK
     Route: 058
     Dates: start: 20090328
  2. MELATONIN [Concomitant]
     Dosage: 1 MG, 1X/DAY

REACTIONS (1)
  - MYALGIA [None]
